FAERS Safety Report 10857185 (Version 4)
Quarter: 2015Q2

REPORT INFORMATION
  Report Type: Spontaneous
  Country: JP (occurrence: JP)
  Receive Date: 20150223
  Receipt Date: 20150408
  Transmission Date: 20150821
  Serious: Yes (Other)
  Sender: FDA-Public Use
  Company Number: JP-PFIZER INC-2015062383

PATIENT
  Age: 52 Year
  Sex: Female
  Weight: 49.6 kg

DRUGS (9)
  1. NEXAVAR [Suspect]
     Active Substance: SORAFENIB
     Indication: METASTASIS
     Dosage: 400 MG, 2X/DAY
     Route: 048
     Dates: start: 20150203, end: 20150213
  2. PROMAC [Suspect]
     Active Substance: NITROFURANTOIN
     Indication: STOMATITIS
     Dosage: 75 MG, 2X/DAY
     Route: 048
     Dates: start: 20150210, end: 20150217
  3. DEPAS [Concomitant]
     Active Substance: ETIZOLAM
     Indication: ANXIETY DISORDER
     Dosage: 0.5 MG, 1X/DAY
     Route: 048
     Dates: start: 20150201
  4. LYRICA [Suspect]
     Active Substance: PREGABALIN
     Indication: NEUROPATHY PERIPHERAL
  5. THYRADIN S [Concomitant]
     Active Substance: LEVOTHYROXINE SODIUM
     Indication: HYPOTHYROIDISM
     Dosage: 175 ?G, 1X/DAY
     Route: 048
     Dates: start: 201407
  6. NEXAVAR [Suspect]
     Active Substance: SORAFENIB
     Indication: THYROID CANCER
  7. LYRICA [Suspect]
     Active Substance: PREGABALIN
     Indication: PALMAR-PLANTAR ERYTHRODYSAESTHESIA SYNDROME
     Dosage: 25 MG, 2X/DAY
     Route: 048
     Dates: start: 20150210, end: 20150217
  8. ASPARA-CA [Concomitant]
     Active Substance: CALCIUM ASPARTATE
     Indication: HYPOCALCAEMIA
     Dosage: 400 MG, 3X/DAY
     Route: 048
     Dates: start: 201407
  9. AMLODIN [Suspect]
     Active Substance: AMLODIPINE BESYLATE
     Indication: HYPERTENSION
     Dosage: 5 MG, 1X/DAY
     Route: 048
     Dates: start: 20150210, end: 20150217

REACTIONS (7)
  - Hypertension [Recovering/Resolving]
  - Erythema multiforme [Recovering/Resolving]
  - Pigmentation disorder [Unknown]
  - Stomatitis [Recovered/Resolved]
  - Product use issue [Unknown]
  - Drug eruption [Recovering/Resolving]
  - Palmar-plantar erythrodysaesthesia syndrome [Unknown]

NARRATIVE: CASE EVENT DATE: 20150204
